FAERS Safety Report 4995543-6 (Version None)
Quarter: 2006Q2

REPORT INFORMATION
  Report Type: 
  Country: None (occurrence: None)
  Receive Date: 20060508
  Receipt Date: 20060427
  Transmission Date: 20061013
  Serious: Yes (Other)
  Sender: FDA-Public Use
  Company Number: AU-ROCHE-446249

PATIENT
  Age: 85 Year
  Sex: Female

DRUGS (8)
  1. CEFTRIAXONE [Suspect]
     Indication: DRUG USE FOR UNKNOWN INDICATION
     Route: 042
     Dates: start: 20051219
  2. MAREVAN [Interacting]
     Route: 048
  3. DIGOXIN [Concomitant]
  4. ATORVASTATIN [Concomitant]
  5. GLYCERYL TRINITRATE [Concomitant]
  6. ATENOLOL [Concomitant]
  7. PROCHLORPERAZINE MALEATE [Concomitant]
  8. RAMIPRIL [Concomitant]

REACTIONS (4)
  - CEREBRAL HAEMORRHAGE [None]
  - DIZZINESS [None]
  - DRUG INTERACTION [None]
  - NYSTAGMUS [None]
